FAERS Safety Report 18121741 (Version 7)
Quarter: 2021Q3

REPORT INFORMATION
  Report Type: Spontaneous
  Country: US (occurrence: US)
  Receive Date: 20200807
  Receipt Date: 20210902
  Transmission Date: 20211014
  Serious: No
  Sender: FDA-Public Use
  Company Number: US-SA-2020SA205208

PATIENT
  Age: 54 Year
  Sex: Female

DRUGS (2)
  1. DUPIXENT [Suspect]
     Active Substance: DUPILUMAB
     Dosage: 300 MG, QOW
     Route: 058
     Dates: start: 202006
  2. DUPIXENT [Suspect]
     Active Substance: DUPILUMAB
     Indication: ASTHMA
     Dosage: 600 MG, 1X
     Route: 058
     Dates: start: 202005, end: 202005

REACTIONS (15)
  - Asthma [Unknown]
  - Heart rate increased [Unknown]
  - Joint swelling [Unknown]
  - Swelling of eyelid [Unknown]
  - Dry eye [Unknown]
  - Hordeolum [Unknown]
  - Migraine [Unknown]
  - Pain [Unknown]
  - Palpitations [Unknown]
  - Rhinorrhoea [Unknown]
  - Tachycardia [Unknown]
  - Product use issue [Unknown]
  - Peripheral swelling [Unknown]
  - Wheezing [Unknown]
  - Hypersensitivity [Unknown]

NARRATIVE: CASE EVENT DATE: 2020
